FAERS Safety Report 6048425-5 (Version None)
Quarter: 2009Q1

REPORT INFORMATION
  Report Type: 
  Country: None (occurrence: None)
  Receive Date: 20090123
  Receipt Date: 20090121
  Transmission Date: 20090719
  Serious: Yes (Other)
  Sender: FDA-Public Use
  Company Number: A0764585A

PATIENT
  Age: 28 Year
  Sex: Female
  Weight: 54 kg

DRUGS (3)
  1. AEROLIN [Suspect]
     Dosage: 5MG THREE TIMES PER DAY
     Dates: start: 20090109
  2. MULTI-VITAMINS [Concomitant]
     Dates: start: 20081120
  3. FOLIC ACID [Concomitant]
     Dates: start: 20081120

REACTIONS (3)
  - DRUG EXPOSURE DURING PREGNANCY [None]
  - TRANSMISSION OF AN INFECTIOUS AGENT VIA A MEDICINAL PRODUCT [None]
  - TREMOR [None]
